FAERS Safety Report 5781026-2 (Version None)
Quarter: 2008Q2

REPORT INFORMATION
  Report Type: 
  Country: None (occurrence: None)
  Receive Date: 20080620
  Receipt Date: 20080609
  Transmission Date: 20081010
  Serious: Yes (Death)
  Sender: FDA-Public Use
  Company Number: US-PFIZER INC-2008048993

PATIENT
  Sex: Female
  Weight: 70.454 kg

DRUGS (6)
  1. TIKOSYN [Suspect]
     Indication: HEART RATE INCREASED
  2. TIKOSYN [Suspect]
     Indication: HEART RATE IRREGULAR
  3. NORVASC [Suspect]
     Indication: HYPERTENSION
  4. ALBUTEROL SULFATE AUTOHALER [Concomitant]
     Route: 055
  5. ATROVENT [Concomitant]
     Route: 055
  6. MICARDIS [Concomitant]

REACTIONS (2)
  - LUNG NEOPLASM MALIGNANT [None]
  - METASTASIS [None]
